FAERS Safety Report 17252282 (Version 2)
Quarter: 2020Q1

REPORT INFORMATION
  Report Type: Spontaneous
  Country: US (occurrence: US)
  Receive Date: 20200109
  Receipt Date: 20200218
  Transmission Date: 20200409
  Serious: No
  Sender: FDA-Public Use
  Company Number: US-LEXICON PHARMACEUTICALS, INC-19-1606-01127

PATIENT
  Sex: Female

DRUGS (3)
  1. XERMELO [Suspect]
     Active Substance: TELOTRISTAT ETHYL
     Indication: CARCINOID SYNDROME
     Dates: start: 20191214, end: 20191223
  2. XERMELO [Suspect]
     Active Substance: TELOTRISTAT ETHYL
  3. LANREOTIDE [Concomitant]
     Active Substance: LANREOTIDE

REACTIONS (5)
  - Peripheral swelling [Unknown]
  - Lip swelling [Unknown]
  - Dry skin [Unknown]
  - Urticaria [Unknown]
  - Pruritus [Unknown]
